FAERS Safety Report 17837018 (Version 1)
Quarter: 2020Q2

REPORT INFORMATION
  Report Type: Spontaneous
  Country: IT (occurrence: IT)
  Receive Date: 20200529
  Receipt Date: 20200529
  Transmission Date: 20200714
  Serious: Yes (Hospitalization)
  Sender: FDA-Public Use
  Company Number: IT-TEVA-2020-IT-1242171

PATIENT
  Age: 70 Year
  Sex: Male

DRUGS (16)
  1. ACENOCOUMAROL [Suspect]
     Active Substance: ACENOCOUMAROL
     Indication: ANTICOAGULANT THERAPY
     Route: 048
  2. SODIUM-THIOSULFATE [Suspect]
     Active Substance: SODIUM THIOSULFATE
     Indication: CALCIPHYLAXIS
     Dosage: 12.5 G POST-DIALYSIS THRICE WEEKLY ACCORDING TO BODY WEIGHT (NINE DOSES)
     Route: 042
  3. SODIUM-THIOSULFATE [Suspect]
     Active Substance: SODIUM THIOSULFATE
     Dosage: INTRALESIONAL [PREPARED VIALS OF 1 G/10 ML], OF WHICH 200 MG (2 ML) WERE ASPIRATED PURELY (WITHOU...
     Route: 026
  4. SODIUM POLYSTYRENE SULPHONATE [Concomitant]
     Active Substance: SODIUM POLYSTYRENE SULFONATE
     Route: 065
  5. OMEPRAZOL [Concomitant]
     Active Substance: OMEPRAZOLE
     Route: 065
  6. EPOETIN BETA [Concomitant]
     Active Substance: ERYTHROPOIETIN
     Route: 065
  7. CEFAZOLIN [Concomitant]
     Active Substance: CEFAZOLIN
     Indication: EVIDENCE BASED TREATMENT
     Route: 065
  8. CINACALCET. [Suspect]
     Active Substance: CINACALCET
     Route: 048
  9. PARICALCITOL. [Suspect]
     Active Substance: PARICALCITOL
     Indication: VITAMIN SUPPLEMENTATION
     Route: 042
  10. CALCIUM CARBONATE. [Suspect]
     Active Substance: CALCIUM CARBONATE
     Route: 065
  11. SEVELAMER CARBONATE. [Suspect]
     Active Substance: SEVELAMER CARBONATE
     Route: 065
  12. BISOPROLOL [Concomitant]
     Active Substance: BISOPROLOL
     Indication: HYPERTENSION
     Route: 065
  13. NIFEDIPINE. [Concomitant]
     Active Substance: NIFEDIPINE
     Indication: HYPERTENSION
     Route: 065
  14. ACETYLSALICYLIC ACID [Concomitant]
     Active Substance: ASPIRIN
     Route: 065
  15. VANCOMICINE [Concomitant]
     Indication: EVIDENCE BASED TREATMENT
     Route: 065
  16. LEVOFLOXACINE [Concomitant]
     Active Substance: LEVOFLOXACIN
     Indication: EVIDENCE BASED TREATMENT
     Route: 065

REACTIONS (8)
  - Gastric disorder [Unknown]
  - Metabolic acidosis [Recovering/Resolving]
  - Infusion site pain [Recovering/Resolving]
  - Electrocardiogram QT prolonged [Recovering/Resolving]
  - Off label use [Unknown]
  - Calciphylaxis [Recovering/Resolving]
  - Nausea [Not Recovered/Not Resolved]
  - Hypocalcaemia [Recovering/Resolving]
